FAERS Safety Report 6454911-6 (Version None)
Quarter: 2009Q4

REPORT INFORMATION
  Report Type: 
  Country: None (occurrence: None)
  Receive Date: 20091124
  Receipt Date: 20091112
  Transmission Date: 20100525
  Serious: Yes (Other)
  Sender: FDA-Public Use
  Company Number: CA-ELI_LILLY_AND_COMPANY-CA200908004453

PATIENT
  Age: 60 Year
  Sex: Male

DRUGS (5)
  1. ZYPREXA [Suspect]
     Dosage: 15 MG, 2/D
     Dates: start: 19970601
  2. CARBOLIT [Concomitant]
  3. LITHIUM [Concomitant]
  4. RIVOTRIL [Concomitant]
  5. PLAQUENIL [Concomitant]

REACTIONS (3)
  - BUNDLE BRANCH BLOCK RIGHT [None]
  - CONDUCTION DISORDER [None]
  - OVERDOSE [None]
